FAERS Safety Report 6961200-X (Version None)
Quarter: 2010Q3

REPORT INFORMATION
  Report Type: 
  Country: None (occurrence: None)
  Receive Date: 20100901
  Receipt Date: 20100820
  Transmission Date: 20110219
  Serious: Yes (Hospitalization)
  Sender: FDA-Public Use
  Company Number: GB-PFIZER INC-2010105642

PATIENT
  Age: 25 Year
  Sex: Female

DRUGS (5)
  1. SULFASALAZINE [Suspect]
     Indication: SERONEGATIVE ARTHRITIS
     Dosage: 1 G, 3X/DAY
     Route: 048
  2. TETRALYSAL [Interacting]
     Indication: ACNE
     Dosage: 300 MG, 1X/DAY
     Route: 048
     Dates: start: 20100701, end: 20100701
  3. ACETAMINOPHEN AND CODEINE PHOSPHATE [Concomitant]
     Indication: SERONEGATIVE ARTHRITIS
     Route: 048
  4. DICLOFENAC [Concomitant]
     Indication: SERONEGATIVE ARTHRITIS
     Route: 048
  5. TRAMADOL [Concomitant]
     Indication: SERONEGATIVE ARTHRITIS
     Route: 048

REACTIONS (8)
  - BENIGN INTRACRANIAL HYPERTENSION [None]
  - DRUG INTERACTION [None]
  - GINGIVITIS [None]
  - HEADACHE [None]
  - HYPERSENSITIVITY [None]
  - LYMPHADENOPATHY [None]
  - MOUTH ULCERATION [None]
  - PYREXIA [None]
